FAERS Safety Report 9112784 (Version 2)
Quarter: 2013Q1

REPORT INFORMATION
  Report Type: Spontaneous
  Country: US (occurrence: US)
  Receive Date: 20130211
  Receipt Date: 20130226
  Transmission Date: 20140127
  Serious: Yes (Hospitalization)
  Sender: FDA-Public Use
  Company Number: US-GILEAD-2013-0069382

PATIENT
  Age: 57 Year
  Sex: Male

DRUGS (2)
  1. VIREAD [Suspect]
     Indication: HEPATITIS B
     Dosage: 21 DF, TOTAL
     Route: 048
     Dates: start: 20130202, end: 20130202
  2. VIREAD [Suspect]
     Dosage: 300 MG, UNK
     Route: 048
     Dates: end: 20130202

REACTIONS (1)
  - Accidental overdose [Recovering/Resolving]
